FAERS Safety Report 9765867 (Version 1)
Quarter: 2013Q4

REPORT INFORMATION
  Report Type: Spontaneous
  Country: US (occurrence: US)
  Receive Date: 20131217
  Receipt Date: 20131217
  Transmission Date: 20140711
  Serious: No
  Sender: FDA-Public Use
  Company Number: US-BIOGENIDEC-2013BI116024

PATIENT
  Age: 56 Year
  Sex: Female

DRUGS (9)
  1. TECFIDERA [Suspect]
     Indication: MULTIPLE SCLEROSIS
     Route: 048
     Dates: start: 201310
  2. TECFIDERA [Suspect]
     Indication: MULTIPLE SCLEROSIS
     Route: 048
     Dates: start: 201310
  3. TYLENOL [Concomitant]
  4. SYNTHROID [Concomitant]
  5. FOLIC ACID [Concomitant]
  6. BACLOFEN [Concomitant]
  7. AMANTADINE [Concomitant]
  8. VESICARE [Concomitant]
  9. VITAMIN D [Concomitant]

REACTIONS (3)
  - Fatigue [Unknown]
  - Constipation [Unknown]
  - Flushing [Unknown]
